FAERS Safety Report 9379971 (Version 1)
Quarter: 2013Q2

REPORT INFORMATION
  Report Type: Spontaneous
  Country: US (occurrence: None)
  Receive Date: 20130627
  Receipt Date: 20130627
  Transmission Date: 20140414
  Serious: Yes (Hospitalization)
  Sender: FDA-Public Use
  Company Number: FK201302136

PATIENT
  Age: 70 Year
  Sex: Female

DRUGS (3)
  1. VANCOMYCIN HYDROCHLORIDE [Suspect]
     Indication: OSTEOMYELITIS
     Route: 041
     Dates: start: 20130517, end: 20130520
  2. PROAIR (FLUTICASONE PROPIONATE) [Concomitant]
  3. THYROID MEDICATION [Concomitant]

REACTIONS (11)
  - Oxygen saturation decreased [None]
  - Incorrect dose administered [None]
  - Headache [None]
  - Pain [None]
  - Feeling hot [None]
  - Blood glucose increased [None]
  - Dyspnoea [None]
  - Chills [None]
  - Nausea [None]
  - Chest pain [None]
  - Catheter site inflammation [None]
